FAERS Safety Report 14030078 (Version 3)
Quarter: 2018Q4

REPORT INFORMATION
  Report Type: Report from Study
  Country: US (occurrence: US)
  Receive Date: 20170930
  Receipt Date: 20181123
  Transmission Date: 20190204
  Serious: Yes (Other)
  Sender: FDA-Public Use
  Company Number: US-SA-2017SA153914

PATIENT
  Age: 61 Year
  Sex: Female

DRUGS (2)
  1. TERIFLUNOMIDE. [Suspect]
     Active Substance: TERIFLUNOMIDE
     Dosage: 14 MG, QD
     Route: 048
     Dates: start: 20180123
  2. TERIFLUNOMIDE. [Suspect]
     Active Substance: TERIFLUNOMIDE
     Indication: RELAPSING-REMITTING MULTIPLE SCLEROSIS
     Dosage: 14 MG, QD
     Route: 048
     Dates: start: 20170607

REACTIONS (6)
  - Multiple sclerosis [Unknown]
  - Oedema peripheral [Unknown]
  - Fatigue [Unknown]
  - Back pain [Unknown]
  - Movement disorder [Unknown]
  - Lethargy [Unknown]

NARRATIVE: CASE EVENT DATE: 20170810
